FAERS Safety Report 10700815 (Version 1)
Quarter: 2015Q1

REPORT INFORMATION
  Report Type: Spontaneous
  Country: US (occurrence: None)
  Receive Date: 20150108
  Receipt Date: 20150108
  Transmission Date: 20150721
  Serious: Yes (Other)
  Sender: FDA-Public Use
  Company Number: None

PATIENT
  Age: 44 Year
  Sex: Female
  Weight: 52.16 kg

DRUGS (10)
  1. PEG-3350, SODIUM CHLORIDE, SODIUM BICARBONATE AND POTASSIUM CHLORIDE [Suspect]
     Active Substance: POLYETHYLENE GLYCOL 3350\POTASSIUM CHLORIDE\SODIUM BICARBONATE\SODIUM CHLORIDE
     Indication: BOWEL PREPARATION
     Dosage: 4000 ML (RECONSTITUTED WITH WATER =PEG ?1ST = 4 CUPS?EVERY 10 MINS ?BY MOUTH
     Route: 048
     Dates: start: 20140521
  2. VITAMIN C [Concomitant]
     Active Substance: ASCORBIC ACID
  3. OMEPRAZOLE. [Concomitant]
     Active Substance: OMEPRAZOLE
  4. GAVILYTE - N [Suspect]
     Active Substance: POLYETHYLENE GLYCOL 3350\POTASSIUM CHLORIDE\SODIUM BICARBONATE\SODIUM CHLORIDE
     Indication: BOWEL PREPARATION
     Dosage: 4000 ML )RECPMSTOTITED WOTJ WATER = PEG 31.3 MMOL/L, ?2ND = 4 LITERS?DRINK 8OZ (BOTH)?BY MOUTH
     Route: 048
     Dates: start: 20140527
  5. BIOTIN [Concomitant]
     Active Substance: BIOTIN
  6. VITAMIN B12 [Concomitant]
     Active Substance: CYANOCOBALAMIN
  7. AMINO ACIDS [Concomitant]
     Active Substance: AMINO ACIDS
  8. KERATIN [Concomitant]
     Active Substance: KERATIN
  9. MULTI-VITAMIN [Concomitant]
     Active Substance: .ALPHA.-TOCOPHEROL ACETATE, DL-\ASCORBIC ACID\CYANOCOBALAMIN\FLUORIDE ION\FOLIC ACID\NIACIN\PYRIDOXINE\RIBOFLAVIN\THIAMINE\VITAMIN A\VITAMIN D
  10. COLLAGEN TYPES I, II + III [Concomitant]

REACTIONS (11)
  - Dyspnoea [None]
  - Hypophagia [None]
  - Seizure [None]
  - Chills [None]
  - Migraine [None]
  - Fluid intake reduced [None]
  - Headache [None]
  - Vomiting [None]
  - Muscle contractions involuntary [None]
  - Hemiplegia [None]
  - Hyperhidrosis [None]

NARRATIVE: CASE EVENT DATE: 20140521
